FAERS Safety Report 16363106 (Version 1)
Quarter: 2019Q2

REPORT INFORMATION
  Report Type: Report from Study
  Country: RS (occurrence: RS)
  Receive Date: 20190528
  Receipt Date: 20190528
  Transmission Date: 20190711
  Serious: Yes (Hospitalization)
  Sender: FDA-Public Use
  Company Number: RS-UCBSA-2019021238

PATIENT
  Age: 75 Year
  Sex: Female
  Weight: 58 kg

DRUGS (5)
  1. MONOPRIL [Concomitant]
     Active Substance: FOSINOPRIL SODIUM
     Indication: HYPERTENSION
     Dosage: 20 MILLIGRAM, ONCE DAILY (QD)
     Route: 048
     Dates: start: 2012
  2. BROMAZEPAM [Concomitant]
     Active Substance: BROMAZEPAM
     Indication: HYPERTENSION
     Dosage: 3 MILLIGRAM, ONCE DAILY (QD)
     Route: 048
     Dates: start: 20181215
  3. MONOPRIL PLUS [Concomitant]
     Indication: HYPERTENSION
     Dosage: 20, 12.5 MG
     Route: 048
     Dates: start: 2012
  4. PANTOPRAZOLE [Concomitant]
     Active Substance: PANTOPRAZOLE
     Indication: PROPHYLAXIS
     Dosage: 20 MILLIGRAM, 2X/DAY (BID)
     Route: 048
     Dates: start: 20181215
  5. CERTOLIZUMAB PEGOL [Suspect]
     Active Substance: CERTOLIZUMAB PEGOL
     Indication: RHEUMATOID ARTHRITIS
     Dosage: UNK
     Route: 058
     Dates: start: 20180927, end: 20181206

REACTIONS (1)
  - Otitis media chronic [Recovered/Resolved]

NARRATIVE: CASE EVENT DATE: 20181215
